FAERS Safety Report 6692516-2 (Version None)
Quarter: 2010Q2

REPORT INFORMATION
  Report Type: 
  Country: None (occurrence: None)
  Receive Date: 20100422
  Receipt Date: 20100415
  Transmission Date: 20101027
  Serious: Yes (Other)
  Sender: FDA-Public Use
  Company Number: B0648128A

PATIENT
  Sex: Female
  Weight: 50 kg

DRUGS (5)
  1. TYKERB [Suspect]
     Indication: BREAST CANCER
     Dosage: 1000MG PER DAY
     Route: 048
     Dates: start: 20090713, end: 20090721
  2. TYKERB [Suspect]
     Dosage: 750MG PER DAY
     Route: 048
     Dates: start: 20090722, end: 20091130
  3. XELODA [Concomitant]
     Dosage: 1200MG PER DAY
     Route: 048
     Dates: start: 20090713, end: 20091130
  4. LETROZOLE [Concomitant]
     Indication: BREAST CANCER
     Dosage: 2.5MG PER DAY
     Route: 048
     Dates: start: 20090824
  5. EURAX [Concomitant]
     Indication: PROPHYLAXIS
     Route: 061
     Dates: start: 20091116

REACTIONS (1)
  - PRURIGO [None]
